FAERS Safety Report 15801570 (Version 1)
Quarter: 2019Q1

REPORT INFORMATION
  Report Type: Spontaneous
  Country: FR (occurrence: FR)
  Receive Date: 20190109
  Receipt Date: 20190109
  Transmission Date: 20190417
  Serious: Yes (Death, Other)
  Sender: FDA-Public Use
  Company Number: FR-MYLANLABS-2019M1001365

PATIENT
  Age: 45 Year
  Sex: Female

DRUGS (4)
  1. MYCOPHENOLATE MOFETIL. [Suspect]
     Active Substance: MYCOPHENOLATE MOFETIL
     Indication: IMMUNOSUPPRESSANT DRUG THERAPY
     Dosage: UNK
  2. MYCOPHENOLATE MOFETIL. [Suspect]
     Active Substance: MYCOPHENOLATE MOFETIL
     Indication: LIVER TRANSPLANT
  3. TACROLIMUS. [Suspect]
     Active Substance: TACROLIMUS
     Indication: IMMUNOSUPPRESSANT DRUG THERAPY
  4. TACROLIMUS. [Suspect]
     Active Substance: TACROLIMUS
     Indication: LIVER TRANSPLANT
     Dosage: UNK
     Route: 065

REACTIONS (11)
  - Abscess jaw [Unknown]
  - Corneal oedema [Not Recovered/Not Resolved]
  - Keratitis [Not Recovered/Not Resolved]
  - Exophthalmos [Unknown]
  - IIIrd nerve paralysis [Unknown]
  - Blindness [Unknown]
  - Sinusitis [Unknown]
  - Dacryocystitis [Unknown]
  - Septic shock [Fatal]
  - Mucormycosis [Unknown]
  - Lacrimal gland enlargement [Not Recovered/Not Resolved]
